FAERS Safety Report 10253199 (Version 1)
Quarter: 2014Q2

REPORT INFORMATION
  Report Type: Spontaneous
  Country: FR (occurrence: FR)
  Receive Date: 20140623
  Receipt Date: 20140623
  Transmission Date: 20141212
  Serious: Yes (Death)
  Sender: FDA-Public Use
  Company Number: FR-SA-2014SA079085

PATIENT
  Age: 72 Year
  Sex: Male

DRUGS (9)
  1. OXALIPLATIN [Suspect]
     Indication: PRODUCT USED FOR UNKNOWN INDICATION
     Route: 042
     Dates: start: 20090309, end: 20090309
  2. FLUOROURACIL [Suspect]
     Indication: PRODUCT USED FOR UNKNOWN INDICATION
     Route: 042
     Dates: start: 20090310, end: 20090311
  3. GEMZAR [Suspect]
     Indication: PRODUCT USED FOR UNKNOWN INDICATION
     Route: 042
     Dates: start: 20090225
  4. AVLOCARDYL [Concomitant]
  5. CRESTOR [Concomitant]
  6. KARDEGIC [Concomitant]
  7. EUPANTOL [Concomitant]
  8. LANTUS [Concomitant]
  9. INNOHEP [Concomitant]
     Dosage: 14.000 U/DAY

REACTIONS (3)
  - Ischaemic stroke [Fatal]
  - Hemiplegia [Fatal]
  - Aphasia [Fatal]
